FAERS Safety Report 9390801 (Version 6)
Quarter: 2014Q2

REPORT INFORMATION
  Report Type: Spontaneous
  Country: US (occurrence: US)
  Receive Date: 20130709
  Receipt Date: 20140625
  Transmission Date: 20141212
  Serious: Yes (Other)
  Sender: FDA-Public Use
  Company Number: US-BAYER-2013-083306

PATIENT
  Age: 43 Year
  Sex: Female
  Weight: 111 kg

DRUGS (1)
  1. MIRENA [Suspect]
     Indication: MENORRHAGIA
     Dosage: 20 MCG/24HR, CONT
     Route: 015
     Dates: start: 20080520, end: 20110728

REACTIONS (8)
  - Embedded device [None]
  - Injury [None]
  - Discomfort [None]
  - Dyspareunia [None]
  - Marital problem [None]
  - Device issue [None]
  - Mental disorder [None]
  - Procedural pain [None]
